FAERS Safety Report 4891621-0 (Version None)
Quarter: 2005Q4

REPORT INFORMATION
  Report Type: 
  Country: None (occurrence: None)
  Receive Date: 20051220
  Receipt Date: 20050915
  Transmission Date: 20060501
  Serious: Yes (Other)
  Sender: FDA-Public Use
  Company Number: 418016

PATIENT
  Sex: Female

DRUGS (3)
  1. BONIVA [Suspect]
     Dosage: ORAL
     Route: 048
     Dates: start: 20050912
  2. BLOOD PRESSURE MEDICATION NOS (ANTIHYPERTENSIVE NOS) [Suspect]
     Indication: BLOOD PRESSURE
     Dosage: ORAL
     Route: 048
  3. WATER PILL NOS (DIURETIC NOS) [Concomitant]

REACTIONS (2)
  - DRUG INTERACTION [None]
  - INFLUENZA LIKE ILLNESS [None]
